FAERS Safety Report 4381152-9 (Version None)
Quarter: 2004Q2

REPORT INFORMATION
  Report Type: 
  Country: None (occurrence: None)
  Receive Date: 20040621
  Receipt Date: 20040611
  Transmission Date: 20050107
  Serious: Yes (Death)
  Sender: FDA-Public Use
  Company Number: PHBS2004JP07737

PATIENT
  Age: 47 Year
  Sex: Male

DRUGS (5)
  1. DIOVAN [Suspect]
     Indication: HYPERTENSION
     Route: 048
  2. LIPITOR [Concomitant]
     Indication: TYPE IIA HYPERLIPIDAEMIA
     Route: 048
  3. BAYASPIRIN [Concomitant]
     Indication: ANGINA PECTORIS
     Route: 048
  4. EPADEL [Concomitant]
     Indication: TYPE IIA HYPERLIPIDAEMIA
     Route: 048
  5. HERBAL ONT [Concomitant]
     Indication: ANGINA PECTORIS
     Route: 048

REACTIONS (1)
  - MYOCARDIAL INFARCTION [None]
